FAERS Safety Report 6254892-4 (Version None)
Quarter: 2009Q3

REPORT INFORMATION
  Report Type: 
  Country: None (occurrence: None)
  Receive Date: 20090702
  Receipt Date: 20090624
  Transmission Date: 20100115
  Serious: Yes (Hospitalization)
  Sender: FDA-Public Use
  Company Number: FR-AVENTIS-200912333FR

PATIENT
  Age: 92 Year
  Sex: Male

DRUGS (2)
  1. LOVENOX [Suspect]
     Indication: THROMBOSIS PROPHYLAXIS
     Route: 058
     Dates: start: 20090318, end: 20090327
  2. PYOSTACINE [Concomitant]
     Indication: ERYSIPELAS
     Route: 048

REACTIONS (1)
  - FAT EMBOLISM [None]
